FAERS Safety Report 17582789 (Version 1)
Quarter: 2020Q1

REPORT INFORMATION
  Report Type: Spontaneous
  Country: FR (occurrence: FR)
  Receive Date: 20200325
  Receipt Date: 20200325
  Transmission Date: 20200409
  Serious: Yes (Hospitalization)
  Sender: FDA-Public Use
  Company Number: FR-ANIPHARMA-2020-FR-000090

PATIENT
  Age: 97 Year
  Sex: Female

DRUGS (10)
  1. DISCOTRINE [Concomitant]
     Active Substance: NITROGLYCERIN
     Dosage: UNKNOWN
  2. HYDROCHLOROTHIAZIDE. [Suspect]
     Active Substance: HYDROCHLOROTHIAZIDE
     Dosage: UNKNOWN
     Route: 048
     Dates: end: 20190422
  3. IKOREL [Concomitant]
     Active Substance: NICORANDIL
     Dosage: DAILY
     Route: 048
  4. IZALGI [Suspect]
     Active Substance: ACETAMINOPHEN\OPIUM
     Dosage: UNKNOWN
     Route: 048
     Dates: start: 20190401, end: 20190422
  5. NEBIVOLOL. [Concomitant]
     Active Substance: NEBIVOLOL
     Dosage: 5 MG QD
     Route: 048
  6. LEVEMIR [Concomitant]
     Active Substance: INSULIN DETEMIR
     Dosage: 24 IU QD
     Route: 058
  7. LOXEN [Concomitant]
     Dosage: 20 MG QD
     Route: 048
  8. CANDESARTAN CILEXETIL. [Suspect]
     Active Substance: CANDESARTAN CILEXETIL
     Indication: HYPERTENSION
     Dosage: UNKNOWN
     Route: 048
     Dates: end: 20190422
  9. VESICARE [Concomitant]
     Active Substance: SOLIFENACIN SUCCINATE
     Dosage: DAILY
     Route: 048
  10. LOXEN [Concomitant]
     Dosage: 50 MG QD
     Route: 048

REACTIONS (2)
  - Confusional state [Recovered/Resolved]
  - Hyponatraemia [Recovered/Resolved]

NARRATIVE: CASE EVENT DATE: 20190407
